FAERS Safety Report 7596410-4 (Version None)
Quarter: 2011Q3

REPORT INFORMATION
  Report Type: 
  Country: None (occurrence: None)
  Receive Date: 20110707
  Receipt Date: 20110627
  Transmission Date: 20111222
  Serious: Yes (Hospitalization, Other)
  Sender: FDA-Public Use
  Company Number: US-AMGEN-USASP2011032843

PATIENT
  Age: 56 Year
  Sex: Male

DRUGS (11)
  1. METHOTREXATE [Suspect]
     Indication: PSORIASIS
  2. DAIVOBET [Concomitant]
  3. ASPIRIN [Concomitant]
  4. VICODIN [Concomitant]
  5. SILDENAFIL CITRATE [Concomitant]
  6. RAPTIVA [Suspect]
     Indication: PSORIASIS
  7. HUMIRA [Suspect]
     Dosage: 40 MG, Q2WK
     Route: 058
     Dates: start: 20091016, end: 20110421
  8. CLOBETASOL PROPIONATE [Concomitant]
  9. ENBREL [Suspect]
     Indication: PRODUCT USED FOR UNKNOWN INDICATION
     Dosage: UNK
  10. FISH OIL [Concomitant]
  11. ALLOPURINOL [Concomitant]

REACTIONS (6)
  - HYPERHIDROSIS [None]
  - PANCREATIC NEOPLASM [None]
  - ABDOMINAL PAIN [None]
  - B-CELL LYMPHOMA [None]
  - BLOOD LACTATE DEHYDROGENASE INCREASED [None]
  - LYMPHOMA [None]
